FAERS Safety Report 8871776 (Version 2)
Quarter: 2013Q2

REPORT INFORMATION
  Report Type: Spontaneous
  Country: US (occurrence: US)
  Receive Date: 20121023
  Receipt Date: 20130412
  Transmission Date: 20140414
  Serious: Yes (Other)
  Sender: FDA-Public Use
  Company Number: US-ASTELLAS-2012US006384

PATIENT
  Age: 73 Year
  Sex: Male

DRUGS (2)
  1. PROGRAF [Suspect]
     Indication: LIVER TRANSPLANT
     Dosage: 4 QAM, 3 QPM
     Route: 048
     Dates: start: 20120203
  2. PROGRAF [Suspect]
     Indication: HEART TRANSPLANT
     Dosage: 2 MG QAM, 1.5 MG QPM
     Route: 048
     Dates: start: 20120203

REACTIONS (4)
  - Aphasia [Not Recovered/Not Resolved]
  - Weight decreased [Unknown]
  - Amnesia [Not Recovered/Not Resolved]
  - Confusional state [Not Recovered/Not Resolved]
